FAERS Safety Report 8003057-4 (Version None)
Quarter: 2011Q4

REPORT INFORMATION
  Report Type: 
  Country: None (occurrence: None)
  Receive Date: 20111222
  Receipt Date: 20111212
  Transmission Date: 20120403
  Serious: Yes (Other)
  Sender: FDA-Public Use
  Company Number: US-ELI_LILLY_AND_COMPANY-US201111005122

PATIENT
  Sex: Female

DRUGS (5)
  1. HUMULIN R [Suspect]
     Dosage: 4 U, UNKNOWN
  2. INSULIN [Concomitant]
  3. HUMULIN N [Suspect]
     Indication: DIABETES MELLITUS
     Dosage: UNK, PRN
     Dates: start: 20050101
  4. HUMULIN R [Suspect]
     Indication: DIABETES MELLITUS
     Dosage: UNK, PRN
     Dates: start: 20050101
  5. HUMULIN N [Suspect]
     Dosage: 26 U, UNKNOWN
     Dates: start: 20050101

REACTIONS (25)
  - ARTHRALGIA [None]
  - SHOCK HYPOGLYCAEMIC [None]
  - CENTRAL NERVOUS SYSTEM INFLAMMATION [None]
  - ARTHRITIS [None]
  - BURSITIS [None]
  - BALANCE DISORDER [None]
  - FLUSHING [None]
  - DRUG INEFFECTIVE [None]
  - BLOOD GLUCOSE DECREASED [None]
  - FALL [None]
  - HEADACHE [None]
  - HYPOGLYCAEMIA UNAWARENESS [None]
  - RASH [None]
  - FEELING HOT [None]
  - PYREXIA [None]
  - HEAD INJURY [None]
  - CONTUSION [None]
  - HYPERHIDROSIS [None]
  - THYROID DISORDER [None]
  - LIMB INJURY [None]
  - BLOOD GLUCOSE INCREASED [None]
  - HEARING IMPAIRED [None]
  - PAIN [None]
  - FATIGUE [None]
  - TENDONITIS [None]
